FAERS Safety Report 6347217-7 (Version None)
Quarter: 2009Q3

REPORT INFORMATION
  Report Type: 
  Country: None (occurrence: None)
  Receive Date: 20090910
  Receipt Date: 20070910
  Transmission Date: 20100115
  Serious: Yes (Hospitalization, Other)
  Sender: FDA-Public Use
  Company Number: US-ASTRAZENECA-2007UW18711

PATIENT
  Age: 41 Year
  Sex: Female
  Weight: 115.2 kg

DRUGS (31)
  1. SEROQUEL [Suspect]
     Indication: ILL-DEFINED DISORDER
     Dosage: 25 MG TO 100 MG
     Route: 048
     Dates: start: 19980101, end: 20071101
  2. SEROQUEL [Suspect]
     Dosage: 25 - 100 MG
     Route: 048
     Dates: start: 20000725
  3. ZOLOFT [Concomitant]
     Dosage: 50 - 100 MG
     Dates: start: 20011207
  4. DEPAKOTE [Concomitant]
  5. DEPAKOTE [Concomitant]
  6. TRAZODONE [Concomitant]
  7. ZYPREXA [Concomitant]
     Indication: SCHIZOPHRENIA
     Dosage: 10MG - 20MG QAM
     Dates: start: 19970701, end: 20071101
  8. ZYPREXA [Concomitant]
     Dosage: 10 - 20 MG
     Route: 048
     Dates: start: 20000717
  9. ARTANE [Concomitant]
     Dates: start: 20050811
  10. ASPIRIN [Concomitant]
  11. LASIX [Concomitant]
  12. PANTOPRAZOLE SODIUM [Concomitant]
     Dates: start: 20010326
  13. PANTOPRAZOLE SODIUM [Concomitant]
  14. DSS [Concomitant]
  15. LISINOPRIL [Concomitant]
     Dates: start: 20050721
  16. INDERAL [Concomitant]
  17. GLUCOPHAGE [Concomitant]
     Dosage: 500 - 1000 MG
     Dates: start: 20010326
  18. ACTOS [Concomitant]
  19. PENTASA [Concomitant]
  20. GLYBURIDE [Concomitant]
     Route: 048
     Dates: start: 20010326
  21. DITROPAN XL [Concomitant]
     Dates: start: 20050111
  22. ATENOLOL [Concomitant]
     Dates: start: 20050721
  23. SALSALATE [Concomitant]
  24. LIPITOR [Concomitant]
     Dosage: 10 - 20 MG
  25. TRAMADOL HCL [Concomitant]
     Dosage: 1 - 2 TAB Q6 HOURS
  26. ALBUTEROL [Concomitant]
     Dosage: 2 PUFF QD
  27. COUMADIN [Concomitant]
     Dosage: 5 - 10 MG
     Dates: start: 20010326
  28. MACROBID [Concomitant]
  29. CLOZARIL [Concomitant]
  30. HALDOL [Concomitant]
  31. ABILIFY (ARIPIPARAZOLE) [Concomitant]
     Dates: start: 20030429, end: 20030508

REACTIONS (12)
  - ABDOMINAL PAIN [None]
  - ASTHENIA [None]
  - CEREBROVASCULAR ACCIDENT [None]
  - DIABETES MELLITUS [None]
  - DIABETIC RETINOPATHY [None]
  - INTENTION TREMOR [None]
  - MUSCULAR WEAKNESS [None]
  - NEOPLASM MALIGNANT [None]
  - NEUROPATHY PERIPHERAL [None]
  - PAIN [None]
  - TYPE 2 DIABETES MELLITUS [None]
  - VAGINAL CANCER STAGE III [None]
